FAERS Safety Report 25108292 (Version 2)
Quarter: 2025Q3

REPORT INFORMATION
  Report Type: Spontaneous
  Country: US (occurrence: US)
  Receive Date: 20250322
  Receipt Date: 20250722
  Transmission Date: 20251021
  Serious: No
  Sender: JOHNSON AND JOHNSON
  Company Number: US-JNJFOC-20250330021

PATIENT
  Age: 44 Year
  Sex: Female
  Weight: 214 kg

DRUGS (5)
  1. TREMFYA [Suspect]
     Active Substance: GUSELKUMAB
     Indication: Psoriasis
     Dosage: TREATMENT START DATE:10-MAR-2025
     Route: 058
  2. CALCIPOTRIENE [Concomitant]
     Active Substance: CALCIPOTRIENE
     Indication: Psoriasis
     Dates: start: 20250310
  3. TACROLIMUS [Concomitant]
     Active Substance: TACROLIMUS
     Indication: Product used for unknown indication
     Dates: start: 20250310
  4. CLOBETASOL PROPIONATE [Concomitant]
     Active Substance: CLOBETASOL PROPIONATE
     Indication: Product used for unknown indication
     Dates: start: 20240924
  5. LEVOCABASTINE HYDROCHLORIDE [Concomitant]
     Active Substance: LEVOCABASTINE HYDROCHLORIDE
     Indication: Product used for unknown indication

REACTIONS (2)
  - Injection site reaction [Recovering/Resolving]
  - Urticaria [Recovered/Resolved]

NARRATIVE: CASE EVENT DATE: 20250201
